FAERS Safety Report 10073284 (Version 2)
Quarter: 2014Q2

REPORT INFORMATION
  Report Type: Spontaneous
  Country: FR (occurrence: FR)
  Receive Date: 20140411
  Receipt Date: 20140423
  Transmission Date: 20141212
  Serious: Yes (Other)
  Sender: FDA-Public Use
  Company Number: FR-VIIV HEALTHCARE LIMITED-B0981950A

PATIENT
  Age: 35 Year
  Sex: Female

DRUGS (2)
  1. COMBIVIR [Suspect]
     Indication: HIV INFECTION
     Route: 048
  2. KALETRA [Suspect]
     Indication: HIV INFECTION
     Route: 048

REACTIONS (2)
  - Abortion spontaneous [Unknown]
  - Exposure during pregnancy [Unknown]
